FAERS Safety Report 16961522 (Version 1)
Quarter: 2019Q4

REPORT INFORMATION
  Report Type: Spontaneous
  Country: US (occurrence: US)
  Receive Date: 20191025
  Receipt Date: 20191025
  Transmission Date: 20200122
  Serious: Yes (Other)
  Sender: FDA-Public Use
  Company Number: US-009507513-1910USA012083

PATIENT

DRUGS (1)
  1. PROVENTIL [Suspect]
     Active Substance: ALBUTEROL
     Dosage: UNK
     Route: 055

REACTIONS (4)
  - Homicidal ideation [Not Recovered/Not Resolved]
  - Product formulation issue [Unknown]
  - Product taste abnormal [Unknown]
  - Reaction to excipient [Not Recovered/Not Resolved]
